FAERS Safety Report 8958844 (Version 1)
Quarter: 2012Q4

REPORT INFORMATION
  Report Type: 
  Country: US (occurrence: US)
  Receive Date: 20121212
  Receipt Date: 20121212
  Transmission Date: 20130627
  Serious: Yes (Hospitalization)
  Sender: FDA-Public Use
  Company Number: US-ELI_LILLY_AND_COMPANY-US201212000262

PATIENT
  Age: 26 Year
  Sex: Female

DRUGS (3)
  1. ZYPREXA [Suspect]
     Dosage: 20 mg, each morning
  2. ZYPREXA [Suspect]
     Dosage: 10 mg, qd
  3. ZYPREXA [Suspect]
     Dosage: 10 mg, each evening

REACTIONS (2)
  - Hospitalisation [Not Recovered/Not Resolved]
  - Prescribed overdose [Not Recovered/Not Resolved]
